FAERS Safety Report 7151423-1 (Version None)
Quarter: 2010Q4

REPORT INFORMATION
  Report Type: 
  Country: None (occurrence: None)
  Receive Date: 20101123
  Receipt Date: 20101109
  Transmission Date: 20110411
  Serious: No
  Sender: FDA-Public Use
  Company Number: 2010SP050107

PATIENT
  Age: 43 Year
  Sex: Female
  Weight: 62 kg

DRUGS (4)
  1. NASONEX [Suspect]
     Indication: RHINITIS PERENNIAL
     Dosage: 1 DF; QD; NAS
     Route: 045
     Dates: start: 19910101, end: 20100701
  2. NEXIUM [Concomitant]
  3. NUVARING [Concomitant]
  4. EUTHYRAL [Concomitant]

REACTIONS (3)
  - LENTICULAR OPACITIES [None]
  - MYOPIA [None]
  - VISUAL ACUITY REDUCED [None]
